FAERS Safety Report 24348883 (Version 1)
Quarter: 2024Q3

REPORT INFORMATION
  Report Type: Report from Study
  Country: US (occurrence: US)
  Receive Date: 20240923
  Receipt Date: 20240923
  Transmission Date: 20241017
  Serious: Yes (Other)
  Sender: AUROBINDO
  Company Number: US-AUROBINDO-AUR-APL-2024-045171

PATIENT
  Sex: Female

DRUGS (6)
  1. DECITABINE [Suspect]
     Active Substance: DECITABINE
     Indication: Myeloproliferative neoplasm
     Dosage: UNK UNK, 2 CYCLICAL
     Route: 065
  2. DECITABINE [Suspect]
     Active Substance: DECITABINE
     Indication: Isocitrate dehydrogenase gene mutation
  3. VENETOCLAX [Suspect]
     Active Substance: VENETOCLAX
     Indication: Myeloproliferative neoplasm
     Dosage: UNK UNK, 2 CYCLICAL
     Route: 065
  4. VENETOCLAX [Suspect]
     Active Substance: VENETOCLAX
     Indication: Isocitrate dehydrogenase gene mutation
  5. ENASIDENIB [Suspect]
     Active Substance: ENASIDENIB
     Indication: Isocitrate dehydrogenase gene mutation
     Dosage: 100 MILLIGRAM, DAILY
     Route: 065
  6. ENASIDENIB [Suspect]
     Active Substance: ENASIDENIB
     Indication: Myeloproliferative neoplasm

REACTIONS (1)
  - Drug ineffective [Unknown]
